FAERS Safety Report 24752796 (Version 1)
Quarter: 2024Q4

REPORT INFORMATION
  Report Type: Spontaneous
  Country: US (occurrence: None)
  Receive Date: 20241218
  Receipt Date: 20241218
  Transmission Date: 20250114
  Serious: Yes (Death)
  Sender: Public
  Company Number: None

PATIENT
  Age: 36 Year
  Sex: Female

DRUGS (1)
  1. KISQALI [Suspect]
     Active Substance: RIBOCICLIB
     Indication: Ovarian cancer
     Dosage: FREQUENCY : AS DIRECTED;?IONCE DAILY FOR 21 DAYS, THEN 7 DAYS OFFI?

REACTIONS (1)
  - Death [None]
